FAERS Safety Report 5664331-X (Version None)
Quarter: 2008Q1

REPORT INFORMATION
  Report Type: 
  Country: None (occurrence: None)
  Receive Date: 20080312
  Receipt Date: 20080227
  Transmission Date: 20080703
  Serious: Yes (Death)
  Sender: FDA-Public Use
  Company Number: US022859

PATIENT
  Age: 50 Year
  Sex: Female

DRUGS (5)
  1. ACTIQ [Suspect]
     Indication: PAIN
     Dosage: 600 MG BUCCAL
     Route: 002
  2. ACTIQ [Suspect]
     Indication: PAIN
     Dosage: 800 UG BUCCAL
     Route: 002
  3. OXYCODONE HCL [Suspect]
     Indication: CANCER PAIN
  4. METHADON HCL TAB [Suspect]
     Indication: PAIN
  5. MORPHINE [Suspect]
     Indication: PAIN

REACTIONS (1)
  - MULTIPLE DRUG OVERDOSE [None]
